FAERS Safety Report 7632583-2 (Version None)
Quarter: 2011Q3

REPORT INFORMATION
  Report Type: 
  Country: None (occurrence: None)
  Receive Date: 20110725
  Receipt Date: 20101020
  Transmission Date: 20111222
  Serious: No
  Sender: FDA-Public Use
  Company Number: US-BRISTOL-MYERS SQUIBB COMPANY-15343379

PATIENT
  Sex: Male

DRUGS (2)
  1. VOLTAREN [Suspect]
     Dosage: FOR:GEL
     Route: 061
  2. COUMADIN [Suspect]
     Indication: COAGULOPATHY
     Route: 048

REACTIONS (2)
  - TOOTH EXTRACTION [None]
  - POST PROCEDURAL HAEMORRHAGE [None]
